FAERS Safety Report 24703353 (Version 3)
Quarter: 2025Q3

REPORT INFORMATION
  Report Type: Report from Study
  Country: US (occurrence: US)
  Receive Date: 20241205
  Receipt Date: 20250702
  Transmission Date: 20251021
  Serious: No
  Sender: SANDOZ
  Company Number: US-SANDOZ-SDZ2024US100059

PATIENT
  Sex: Male

DRUGS (2)
  1. OMNITROPE [Suspect]
     Active Substance: SOMATROPIN
     Indication: Hypopituitarism
     Dosage: 1.5 MG, QD (10 MG/1.5 ML)
     Route: 058
  2. OMNITROPE [Suspect]
     Active Substance: SOMATROPIN
     Indication: Hypopituitarism
     Dosage: 1.5 MG, QD (10 MG/1.5 ML)
     Route: 058

REACTIONS (4)
  - Administration site bruise [Unknown]
  - Incorrect dose administered [Not Recovered/Not Resolved]
  - Product dose omission issue [Unknown]
  - Device leakage [Unknown]
